FAERS Safety Report 14323961 (Version 4)
Quarter: 2020Q3

REPORT INFORMATION
  Report Type: Spontaneous
  Country: NL (occurrence: NL)
  Receive Date: 20171226
  Receipt Date: 20200709
  Transmission Date: 20201102
  Serious: Yes (Hospitalization)
  Sender: FDA-Public Use
  Company Number: PHHY2017NL192585

PATIENT
  Age: 73 Year
  Sex: Female

DRUGS (9)
  1. METOPROLOL. [Suspect]
     Active Substance: METOPROLOL
     Indication: ARRHYTHMIA
     Dosage: 1D1T
     Route: 048
  2. OMEPRAZOL [Concomitant]
     Active Substance: OMEPRAZOLE
     Indication: PRODUCT USED FOR UNKNOWN INDICATION
     Dosage: UNK
     Route: 065
  3. SPIRONOLACTONE. [Suspect]
     Active Substance: SPIRONOLACTONE
     Indication: HYPERTENSION
     Dosage: 12.5 MG, QD
     Route: 065
     Dates: end: 201710
  4. HYDROCHLOROTHIAZIDE,VALSARTAN [Suspect]
     Active Substance: HYDROCHLOROTHIAZIDE\VALSARTAN
     Indication: HYPERTENSION
     Dosage: 1 MG/L, QD
     Route: 065
     Dates: end: 201710
  5. HYDREA [Concomitant]
     Active Substance: HYDROXYUREA
     Indication: PRODUCT USED FOR UNKNOWN INDICATION
     Dosage: UNK
     Route: 065
  6. HYDROCHLOORTHIAZIDE [Suspect]
     Active Substance: HYDROCHLOROTHIAZIDE
     Indication: HYPERTENSION
     Dosage: 1D1T
     Route: 048
     Dates: end: 201710
  7. HYDRALAZINE [Suspect]
     Active Substance: HYDRALAZINE HYDROCHLORIDE
     Indication: HYPERTENSION
     Dosage: 10 MG, Q8H (3D1T)
     Route: 048
     Dates: end: 201710
  8. XARELTO [Concomitant]
     Active Substance: RIVAROXABAN
     Indication: PRODUCT USED FOR UNKNOWN INDICATION
     Dosage: UNK
     Route: 065
  9. HYDREA [Concomitant]
     Active Substance: HYDROXYUREA
     Route: 048

REACTIONS (1)
  - Chillblains [Recovered/Resolved with Sequelae]

NARRATIVE: CASE EVENT DATE: 20160811
